FAERS Safety Report 8318595-4 (Version None)
Quarter: 2012Q2

REPORT INFORMATION
  Report Type: 
  Country: None (occurrence: None)
  Receive Date: 20120427
  Receipt Date: 20090806
  Transmission Date: 20120825
  Serious: No
  Sender: FDA-Public Use
  Company Number: US-TEVA-2009009298

PATIENT
  Sex: Female
  Weight: 59.02 kg

DRUGS (7)
  1. REBIF [Concomitant]
  2. BONIVA [Concomitant]
     Dosage: 5 MILLIGRAM;
  3. NUVIGIL [Suspect]
     Indication: POOR QUALITY SLEEP
     Dosage: 150 MILLIGRAM;
     Route: 048
     Dates: start: 20090805
  4. PINDOLOL [Concomitant]
     Dosage: 10 MILLIGRAM;
  5. CALCIUM CITRATE [Concomitant]
     Dosage: 630 MILLIGRAM;
  6. MULTI-VITAMINS [Concomitant]
  7. BEE POLLEN [Concomitant]

REACTIONS (2)
  - FEELING ABNORMAL [None]
  - INSOMNIA [None]
